FAERS Safety Report 16593054 (Version 1)
Quarter: 2019Q3

REPORT INFORMATION
  Report Type: Spontaneous
  Country: US (occurrence: US)
  Receive Date: 20190718
  Receipt Date: 20190718
  Transmission Date: 20191004
  Serious: No
  Sender: FDA-Public Use
  Company Number: US-TEVA-2019-US-1078131

PATIENT
  Sex: Male

DRUGS (1)
  1. TADALAFIL. [Suspect]
     Active Substance: TADALAFIL
     Indication: ERECTILE DYSFUNCTION
     Dosage: DOSE STRENGTH:  20
     Dates: start: 20190706, end: 20190706

REACTIONS (5)
  - Pain in extremity [Recovered/Resolved]
  - Product prescribing error [Unknown]
  - Musculoskeletal stiffness [Recovered/Resolved]
  - Wrong technique in product usage process [Unknown]
  - Back pain [Recovered/Resolved]

NARRATIVE: CASE EVENT DATE: 20190706
